FAERS Safety Report 12363981 (Version 1)
Quarter: 2016Q2

REPORT INFORMATION
  Report Type: Spontaneous
  Country: JP (occurrence: None)
  Receive Date: 20160512
  Receipt Date: 20160512
  Transmission Date: 20160815
  Serious: Yes (Other)
  Sender: FDA-Public Use
  Company Number: 8081940

PATIENT

DRUGS (1)
  1. RECOMBINANT HUMAN GROWTH HORMONE (RHGH) [Suspect]
     Active Substance: SOMATROPIN
     Indication: GROWTH HORMONE DEFICIENCY
     Route: 023

REACTIONS (3)
  - Neoplasm recurrence [None]
  - Diabetes mellitus [None]
  - Brain neoplasm [None]
